FAERS Safety Report 25884007 (Version 2)
Quarter: 2025Q4

REPORT INFORMATION
  Report Type: Spontaneous
  Country: US (occurrence: US)
  Receive Date: 20251006
  Receipt Date: 20251112
  Transmission Date: 20260118
  Serious: Yes (Hospitalization, Other)
  Sender: CSL BEHRING
  Company Number: US-BEH-2025220415

PATIENT
  Sex: Male

DRUGS (9)
  1. IDELVION [Suspect]
     Active Substance: COAGULATION FACTOR IX RECOMBINANT HUMAN
     Indication: Factor IX deficiency
     Dosage: 670 IU, (603-821) SLOW IV PUSH EVERY WEDNESDAY ONCE A WEEK AND AS NEEDED FOR BREAKTHROUGH BLEEDING
     Route: 042
     Dates: start: 202312
  2. IDELVION [Suspect]
     Active Substance: COAGULATION FACTOR IX RECOMBINANT HUMAN
     Indication: Factor IX deficiency
     Dosage: 670 IU, (603-821) SLOW IV PUSH EVERY WEDNESDAY ONCE A WEEK AND AS NEEDED FOR BREAKTHROUGH BLEEDING
     Route: 042
     Dates: start: 202312
  3. IDELVION [Suspect]
     Active Substance: COAGULATION FACTOR IX RECOMBINANT HUMAN
     Indication: Haemorrhage
     Dosage: 1340 IU, (1206- 1474) SLOW IV PUSH ONCE BEFORE SURGERY AND EVERY OTHER DAY FOR 7 DAYS AFTER SURGERY
     Route: 042
     Dates: start: 202312
  4. IDELVION [Suspect]
     Active Substance: COAGULATION FACTOR IX RECOMBINANT HUMAN
     Indication: Haemorrhage
     Dosage: 1340 IU, (1206- 1474) SLOW IV PUSH ONCE BEFORE SURGERY AND EVERY OTHER DAY FOR 7 DAYS AFTER SURGERY
     Route: 042
     Dates: start: 202312
  5. IDELVION [Suspect]
     Active Substance: COAGULATION FACTOR IX RECOMBINANT HUMAN
     Dosage: 1080 IU, QW
     Route: 042
     Dates: start: 202312
  6. IDELVION [Suspect]
     Active Substance: COAGULATION FACTOR IX RECOMBINANT HUMAN
     Dosage: 1080 IU, QW
     Route: 042
     Dates: start: 202312
  7. IDELVION [Suspect]
     Active Substance: COAGULATION FACTOR IX RECOMBINANT HUMAN
     Dosage: 1080 IU, EVERY 72 HOURS PRN
     Route: 042
     Dates: start: 202312
  8. IDELVION [Suspect]
     Active Substance: COAGULATION FACTOR IX RECOMBINANT HUMAN
     Dosage: 1080 IU, EVERY 72 HOURS PRN
     Route: 042
     Dates: start: 202312
  9. SODIUM CHLORIDE [Concomitant]
     Active Substance: SODIUM CHLORIDE
     Dosage: 10 ML

REACTIONS (3)
  - Haemorrhage [Unknown]
  - Haemorrhage [Unknown]
  - Central venous catheterisation [Unknown]
